FAERS Safety Report 5284316-5 (Version None)
Quarter: 2007Q2

REPORT INFORMATION
  Report Type: 
  Country: None (occurrence: None)
  Receive Date: 20070403
  Receipt Date: 20070326
  Transmission Date: 20071010
  Serious: Yes (Hospitalization)
  Sender: FDA-Public Use
  Company Number: GBWYE940308MAR07

PATIENT
  Sex: Male

DRUGS (6)
  1. ETANERCEPT [Suspect]
     Indication: JUVENILE ARTHRITIS
     Route: 058
     Dates: start: 20000910
  2. INDOMETHACIN [Concomitant]
     Dosage: UNKNOWN
     Dates: start: 19970801
  3. METHOTREXATE [Concomitant]
     Dates: start: 19950301, end: 19970201
  4. METHOTREXATE [Concomitant]
     Dates: start: 19970201, end: 19970601
  5. METHOTREXATE [Concomitant]
     Dosage: UNKNOWN
     Dates: start: 19970601
  6. PREDNISOLONE [Concomitant]
     Route: 048
     Dates: start: 19980701

REACTIONS (3)
  - ARTHRITIS [None]
  - CONDITION AGGRAVATED [None]
  - VIRAL PHARYNGITIS [None]
